FAERS Safety Report 4767810-2 (Version None)
Quarter: 2005Q3

REPORT INFORMATION
  Report Type: 
  Country: None (occurrence: None)
  Receive Date: 20050912
  Receipt Date: 20050830
  Transmission Date: 20060218
  Serious: Yes (Hospitalization, Other)
  Sender: FDA-Public Use
  Company Number: HQWYE135926AUG05

PATIENT
  Age: 27 Year
  Sex: Female

DRUGS (6)
  1. VENLAFAXINE HCL [Suspect]
     Indication: DEPRESSION
     Dosage: SEE IMAGE
     Route: 048
     Dates: start: 20050621, end: 20050626
  2. VENLAFAXINE HCL [Suspect]
     Indication: DEPRESSION
     Dosage: SEE IMAGE
     Route: 048
     Dates: start: 20050627, end: 20050703
  3. VENLAFAXINE HCL [Suspect]
     Indication: DEPRESSION
     Dosage: SEE IMAGE
     Route: 048
     Dates: start: 20050704, end: 20050819
  4. LOXONIN (LOXOPROFEN SODIUM) [Concomitant]
  5. HALCION [Concomitant]
  6. LENDORM [Concomitant]

REACTIONS (2)
  - MALNUTRITION [None]
  - VOMITING [None]
